FAERS Safety Report 9729703 (Version 3)
Quarter: 2015Q3

REPORT INFORMATION
  Report Type: Spontaneous
  Country: US (occurrence: US)
  Receive Date: 20131204
  Receipt Date: 20150804
  Transmission Date: 20151125
  Serious: No
  Sender: FDA-Public Use
  Company Number: US-GILEAD-2009-0020992

PATIENT
  Age: 56 Year
  Sex: Male
  Weight: 80.29 kg

DRUGS (5)
  1. KLOR-CON [Concomitant]
     Active Substance: POTASSIUM CHLORIDE
  2. FUROSEMIDE. [Concomitant]
     Active Substance: FUROSEMIDE
  3. ASPIRIN. [Concomitant]
     Active Substance: ASPIRIN
  4. METHIMAZOLE. [Concomitant]
     Active Substance: METHIMAZOLE
  5. LETAIRIS [Suspect]
     Active Substance: AMBRISENTAN
     Indication: PULMONARY ARTERIAL HYPERTENSION
     Route: 048
     Dates: start: 20090216

REACTIONS (3)
  - Dyspnoea [Recovering/Resolving]
  - Adverse drug reaction [Unknown]
  - Oedema peripheral [Recovering/Resolving]
